FAERS Safety Report 6268267-5 (Version None)
Quarter: 2009Q3

REPORT INFORMATION
  Report Type: 
  Country: None (occurrence: None)
  Receive Date: 20090715
  Receipt Date: 20090707
  Transmission Date: 20100115
  Serious: Yes (Other)
  Sender: FDA-Public Use
  Company Number: US-JNJFOC-20090702912

PATIENT
  Sex: Female
  Weight: 51.71 kg

DRUGS (3)
  1. TOPAMAX [Suspect]
     Indication: MIGRAINE PROPHYLAXIS
     Route: 048
  2. INHALERS [Concomitant]
     Indication: ASTHMA
     Route: 065
  3. NEXIUM [Concomitant]
     Indication: GASTROOESOPHAGEAL REFLUX DISEASE
     Route: 065

REACTIONS (4)
  - CYST [None]
  - DEAFNESS [None]
  - EAR DISCOMFORT [None]
  - EUSTACHIAN TUBE DYSFUNCTION [None]
